FAERS Safety Report 9994143 (Version 1)
Quarter: 2014Q1

REPORT INFORMATION
  Report Type: Spontaneous
  Country: CA (occurrence: CA)
  Receive Date: 20140310
  Receipt Date: 20140310
  Transmission Date: 20141002
  Serious: Yes (Hospitalization, Disabling, Other)
  Sender: FDA-Public Use
  Company Number: CA-009507513-1403CAN003006

PATIENT
  Age: 71 Year
  Sex: Female
  Weight: 68 kg

DRUGS (11)
  1. FOSAMAX [Suspect]
     Dosage: 70 MG, QW
     Route: 048
  2. AMLODIPINE [Concomitant]
     Route: 048
  3. ASPIRIN [Concomitant]
  4. CALCIUM CARBONATE [Concomitant]
  5. CANDESARTAN CILEXETIL [Concomitant]
     Route: 048
  6. CELEBREX [Concomitant]
     Route: 048
  7. CLONAZEPAM [Concomitant]
     Route: 048
  8. METOPROLOL [Concomitant]
  9. MIRTAZAPINE [Concomitant]
     Route: 048
  10. OLANZAPINE [Concomitant]
  11. SIMVASTATIN [Concomitant]
     Route: 048

REACTIONS (2)
  - Fall [Unknown]
  - Atypical femur fracture [Unknown]
